FAERS Safety Report 17891112 (Version 1)
Quarter: 2020Q2

REPORT INFORMATION
  Report Type: Spontaneous
  Country: JP (occurrence: JP)
  Receive Date: 20200612
  Receipt Date: 20200612
  Transmission Date: 20200714
  Serious: Yes (Other)
  Sender: FDA-Public Use
  Company Number: JP-PFIZER INC-2020226793

PATIENT
  Age: 85 Year
  Sex: Male
  Weight: 58.3 kg

DRUGS (9)
  1. CANDESARTAN [CANDESARTAN CILEXETIL] [Concomitant]
     Active Substance: CANDESARTAN CILEXETIL
     Dosage: UNK
  2. MEROPENEM 0.5G PFIZER [Suspect]
     Active Substance: MEROPENEM
     Indication: CHOLANGITIS
     Dosage: 1 G, 3X/DAY
     Route: 041
     Dates: start: 20200603, end: 20200605
  3. PARIET [Concomitant]
     Active Substance: RABEPRAZOLE SODIUM
     Dosage: UNK
  4. MAGNESIUM OXIDE. [Concomitant]
     Active Substance: MAGNESIUM OXIDE
     Dosage: UNK
  5. MEROPENEM 0.5G PFIZER [Suspect]
     Active Substance: MEROPENEM
     Dosage: 0.5 G, 3X/DAY
     Route: 041
     Dates: start: 20200605
  6. CEFMETAZOLE NA [Suspect]
     Active Substance: CEFMETAZOLE
     Indication: CHOLANGITIS
     Dosage: 1 G, 3X/DAY
     Route: 041
     Dates: start: 20200602, end: 20200603
  7. LOXOPROFEN NA [Concomitant]
     Active Substance: LOXOPROFEN SODIUM
     Dosage: UNK
  8. BAYASPIRIN [Concomitant]
     Active Substance: ASPIRIN
     Dosage: UNK
  9. LEVOFLOXACIN. [Concomitant]
     Active Substance: LEVOFLOXACIN
     Indication: CHOLANGITIS
     Dosage: UNK
     Route: 048
     Dates: start: 20200602

REACTIONS (1)
  - Drug-induced liver injury [Recovering/Resolving]

NARRATIVE: CASE EVENT DATE: 20200605
